FAERS Safety Report 7503315-3 (Version None)
Quarter: 2011Q2

REPORT INFORMATION
  Report Type: 
  Country: None (occurrence: None)
  Receive Date: 20110525
  Receipt Date: 20110517
  Transmission Date: 20111010
  Serious: Yes (Death, Other)
  Sender: FDA-Public Use
  Company Number: JP-AMGEN-JPNCT2011026870

PATIENT
  Age: 75 Year
  Sex: Female
  Weight: 52 kg

DRUGS (13)
  1. PANPYOTIN [Concomitant]
     Dosage: UNK
     Route: 048
  2. FLUOROURACIL [Concomitant]
     Indication: COLORECTAL CANCER
     Route: 041
     Dates: start: 20101006, end: 20101025
  3. GASMOTIN [Concomitant]
     Dosage: UNK
     Route: 048
  4. CORTICOSTEROIDS [Concomitant]
     Indication: PROPHYLAXIS
     Dosage: UNK
     Route: 065
  5. OXYCONTIN [Concomitant]
     Dosage: UNK
     Route: 048
  6. MAGNESIUM OXIDE [Concomitant]
     Dosage: UNK
     Route: 048
  7. CALONAL [Concomitant]
     Dosage: UNK
     Route: 048
  8. LANSOPRAZOLE [Concomitant]
     Dosage: UNK
     Route: 048
  9. FLUITRAN [Concomitant]
     Dosage: UNK
     Route: 048
  10. RENOPENT [Concomitant]
     Dosage: UNK
     Route: 048
  11. PANITUMUMAB [Suspect]
     Indication: COLORECTAL CANCER
     Dosage: 6 MG/KG, Q2WK
     Route: 041
     Dates: start: 20101006, end: 20101115
  12. IRINOTECAN HCL [Concomitant]
     Indication: COLORECTAL CANCER
     Route: 041
     Dates: start: 20101006, end: 20101025
  13. LEUCOVORIN CALCIUM [Concomitant]
     Indication: COLORECTAL CANCER
     Route: 041
     Dates: start: 20101006, end: 20101025

REACTIONS (2)
  - HYPERMAGNESAEMIA [None]
  - COLORECTAL CANCER [None]
